FAERS Safety Report 19041332 (Version 1)
Quarter: 2021Q1

REPORT INFORMATION
  Report Type: Spontaneous
  Country: RU (occurrence: RU)
  Receive Date: 20210323
  Receipt Date: 20210323
  Transmission Date: 20210420
  Serious: Yes (Death, Hospitalization)
  Sender: FDA-Public Use
  Company Number: RU-TEVA-2021-RU-1892815

PATIENT
  Age: 62 Year
  Sex: Male

DRUGS (21)
  1. BUDESONIDE. [Suspect]
     Active Substance: BUDESONIDE
     Indication: ANTIINFLAMMATORY THERAPY
  2. FLUTICASONE PROPIONATE/SALMETEROL [Suspect]
     Active Substance: FLUTICASONE PROPIONATE\SALMETEROL XINAFOATE
     Indication: ASTHMA
     Dosage: 4 DOSAGE FORMS DAILY; SALMETEROL: 25 G; FLUTICASONE PROPIONATE: 250 G
     Route: 065
  3. METHOTREXATE. [Suspect]
     Active Substance: METHOTREXATE
     Indication: EOSINOPHILIC GRANULOMATOSIS WITH POLYANGIITIS
     Route: 065
  4. FENOTEROL [Suspect]
     Active Substance: FENOTEROL
     Indication: ANTIINFLAMMATORY THERAPY
  5. CEFOPERAZONE [Suspect]
     Active Substance: CEFOPERAZONE
     Indication: PNEUMONIA KLEBSIELLA
     Dosage: 4 GRAM DAILY;
     Route: 042
  6. IPRATROPIUM BROMIDE. [Suspect]
     Active Substance: IPRATROPIUM BROMIDE
     Indication: ANTIINFLAMMATORY THERAPY
  7. FENOTEROL [Suspect]
     Active Substance: FENOTEROL
     Indication: ASTHMA
     Route: 065
  8. BUDESONIDE. [Suspect]
     Active Substance: BUDESONIDE
     Indication: ASTHMA
     Dosage: 2000 MICROGRAM DAILY;
     Route: 065
  9. SALMETEROL/FLUTICASONE [Suspect]
     Active Substance: FLUTICASONE PROPIONATE\SALMETEROL XINAFOATE
     Indication: ASTHMA
  10. FLUTICASONE PROPIONATE/SALMETEROL [Suspect]
     Active Substance: FLUTICASONE PROPIONATE\SALMETEROL XINAFOATE
     Indication: ASTHMA
  11. TIOTROPIUM BROMIDE [Suspect]
     Active Substance: TIOTROPIUM BROMIDE
     Indication: ASTHMA
  12. IPRATROPIUM BROMIDE. [Suspect]
     Active Substance: IPRATROPIUM BROMIDE
     Indication: ASTHMA
     Dosage: NEBULISED
     Route: 055
  13. CEFTRIAXONE. [Concomitant]
     Active Substance: CEFTRIAXONE
     Indication: PNEUMONIA KLEBSIELLA
     Dosage: 2 GRAM DAILY;
     Route: 042
  14. TIOTROPIUM BROMIDE [Suspect]
     Active Substance: TIOTROPIUM BROMIDE
     Indication: ASTHMA
     Dosage: 18 MICROGRAM DAILY;
     Route: 065
  15. SALMETEROL/FLUTICASONE [Suspect]
     Active Substance: FLUTICASONE PROPIONATE\SALMETEROL XINAFOATE
     Indication: ASTHMA
     Dosage: 4 DOSAGE FORMS DAILY; SALMETEROL: 25 MG; FLUTICASONE PROPIONATE: 250 MG
     Route: 055
  16. PREDNISOLONE. [Suspect]
     Active Substance: PREDNISOLONE
     Route: 048
  17. PREDNISOLONE. [Suspect]
     Active Substance: PREDNISOLONE
     Indication: EOSINOPHILIC GRANULOMATOSIS WITH POLYANGIITIS
     Route: 042
  18. PREDNISOLONE. [Suspect]
     Active Substance: PREDNISOLONE
     Indication: ANTIINFLAMMATORY THERAPY
     Route: 042
  19. PREDNISOLONE. [Suspect]
     Active Substance: PREDNISOLONE
     Dosage: PROLONGED THERAPY
     Route: 048
  20. AMIKACIN. [Suspect]
     Active Substance: AMIKACIN
     Indication: PNEUMONIA KLEBSIELLA
     Dosage: 1 GRAM DAILY;
     Route: 042
  21. CIPROFLOXACIN. [Concomitant]
     Active Substance: CIPROFLOXACIN
     Indication: PNEUMONIA KLEBSIELLA
     Dosage: 800 MILLIGRAM DAILY;
     Route: 042

REACTIONS (6)
  - Respiratory failure [Fatal]
  - Bronchiectasis [Not Recovered/Not Resolved]
  - Drug ineffective [Unknown]
  - Asthma [Fatal]
  - Pneumonia klebsiella [Fatal]
  - Lung abscess [Not Recovered/Not Resolved]

NARRATIVE: CASE EVENT DATE: 2015
